FAERS Safety Report 10064612 (Version 3)
Quarter: 2014Q2

REPORT INFORMATION
  Report Type: Spontaneous
  Country: US (occurrence: US)
  Receive Date: 20140408
  Receipt Date: 20140625
  Transmission Date: 20141212
  Serious: Yes (Hospitalization)
  Sender: FDA-Public Use
  Company Number: US-SA-2014SA038704

PATIENT
  Age: 55 Year
  Sex: Female
  Weight: 83.3 kg

DRUGS (28)
  1. LASIX [Suspect]
     Indication: HYPERTENSION
     Route: 048
     Dates: start: 20130904, end: 20130915
  2. HYDROCHLOROTHIAZIDE [Suspect]
     Indication: HYPERTENSION
     Route: 048
     Dates: start: 2011, end: 20130915
  3. BLINDED THERAPY [Concomitant]
     Indication: OSTEOARTHRITIS
     Route: 065
     Dates: start: 20130504, end: 20130824
  4. BLINDED THERAPY [Concomitant]
     Indication: RHEUMATOID ARTHRITIS
     Route: 065
     Dates: start: 20130504, end: 20130824
  5. NEXIUM [Concomitant]
     Indication: PROPHYLAXIS
  6. GABAPENTIN [Concomitant]
     Indication: DIABETIC NEUROPATHY
     Dates: start: 2006
  7. LISINOPRIL [Concomitant]
     Indication: HYPERTENSION
     Dates: start: 2011
  8. PROZAC [Concomitant]
     Indication: ANXIETY
     Dates: start: 2006
  9. VITAMIN D [Concomitant]
     Indication: NUTRITIONAL SUPPLEMENTATION
     Dates: start: 2011
  10. LANTUS [Concomitant]
     Indication: TYPE 2 DIABETES MELLITUS
     Route: 058
     Dates: start: 2010
  11. HYDROCODONE [Concomitant]
     Indication: OSTEOARTHRITIS
     Dates: start: 20130503
  12. ALBUTEROL [Concomitant]
     Indication: ASTHMA
     Dates: start: 20130527
  13. METFORMIN [Concomitant]
     Dates: start: 20130731
  14. BENTYL [Concomitant]
     Indication: NAUSEA
     Dates: start: 20130826
  15. INSULIN, REGULAR [Concomitant]
     Indication: TYPE 2 DIABETES MELLITUS
     Dates: start: 20130826
  16. BACTRIM DS [Concomitant]
     Indication: URINARY TRACT INFECTION
     Dates: start: 20130822, end: 20130907
  17. REGLAN [Concomitant]
     Indication: NAUSEA
     Dates: start: 20130826
  18. ERYTHROMYCIN [Concomitant]
     Indication: NAUSEA
     Dates: start: 20130826
  19. TRAMADOL [Concomitant]
     Indication: OSTEOARTHRITIS
     Dates: start: 20130826
  20. TRAMADOL [Concomitant]
     Indication: BACK PAIN
     Dates: start: 20130826
  21. PYRIDIUM [Concomitant]
     Indication: URINARY TRACT INFECTION
     Dates: start: 20130822, end: 20130825
  22. PHENERGAN [Concomitant]
     Indication: NAUSEA
     Dates: start: 20130711, end: 20130824
  23. ROCEPHIN [Concomitant]
     Indication: PYELONEPHRITIS
     Dates: start: 20130824, end: 20130826
  24. LOVENOX [Concomitant]
     Indication: THROMBOSIS PROPHYLAXIS
     Dates: start: 20130824, end: 20130826
  25. NOVOLIN R [Concomitant]
     Indication: TYPE 2 DIABETES MELLITUS
     Dates: start: 20130801
  26. BACLOFEN [Concomitant]
     Indication: BACK PAIN
     Dates: start: 20130711
  27. VITAMIN B COMPLEX [Concomitant]
     Indication: VITAMIN B12 DEFICIENCY
     Dates: start: 20130731
  28. ACETAMINOPHEN [Concomitant]
     Indication: OSTEOARTHRITIS
     Dates: start: 2008

REACTIONS (13)
  - Ankle fracture [Recovered/Resolved]
  - Femur fracture [Recovered/Resolved]
  - Compression fracture [Recovered/Resolved]
  - Metabolic acidosis [Recovered/Resolved]
  - Intestinal ischaemia [Recovered/Resolved with Sequelae]
  - Perirenal haematoma [Recovered/Resolved]
  - Oxygen saturation decreased [Recovered/Resolved]
  - Cervical vertebral fracture [Recovered/Resolved]
  - Post concussion syndrome [Recovered/Resolved]
  - Leukocytosis [Recovered/Resolved]
  - Wound dehiscence [Recovered/Resolved]
  - Fibula fracture [Recovered/Resolved]
  - Hypokalaemia [Recovered/Resolved]
